FAERS Safety Report 8588861-6 (Version None)
Quarter: 2012Q3

REPORT INFORMATION
  Report Type: 
  Country: None (occurrence: None)
  Receive Date: 20120813
  Receipt Date: 20120807
  Transmission Date: 20120928
  Serious: Yes (Other)
  Sender: FDA-Public Use
  Company Number: FR-PFIZER INC-2012077690

PATIENT
  Age: 3 Year
  Sex: Female
  Weight: 13.5 kg

DRUGS (4)
  1. ACETAMINOPHEN [Concomitant]
     Indication: HEADACHE
     Dosage: 240 MG PER DAY IN FOUR INTAKES, IN ALTERNANCE WITH IBUPROFEN (ADVIL ENFANTS ET NOURRISSONS)
     Route: 048
  2. ACETAMINOPHEN [Concomitant]
     Indication: VOMITING
  3. PEDIATRIC ADVIL [Suspect]
     Indication: VOMITING
  4. PEDIATRIC ADVIL [Suspect]
     Indication: HEADACHE
     Dosage: 2 TIMES PER DAY, IN ALTERNANCE WITH PARACETAMOL (DOLIPRANE)
     Dates: start: 20111007, end: 20111014

REACTIONS (8)
  - PYREXIA [None]
  - POOR QUALITY DRUG ADMINISTERED [None]
  - VOMITING [None]
  - HEADACHE [None]
  - MALAISE [None]
  - SOMNOLENCE [None]
  - GAIT DISTURBANCE [None]
  - FALL [None]
